FAERS Safety Report 21539212 (Version 1)
Quarter: 2022Q4

REPORT INFORMATION
  Report Type: Spontaneous
  Country: IT (occurrence: IT)
  Receive Date: 20221102
  Receipt Date: 20221102
  Transmission Date: 20230112
  Serious: Yes (Hospitalization)
  Sender: FDA-Public Use
  Company Number: None

PATIENT
  Age: 77 Year
  Sex: Male
  Weight: 70 kg

DRUGS (11)
  1. PEMETREXED [Suspect]
     Active Substance: PEMETREXED
     Indication: Lung neoplasm
     Dosage: 701 MG / CYCLIC DOSE EVERY 21 DAYS , UNIT DOSE : 701 MG
     Route: 065
     Dates: start: 20220919, end: 20220919
  2. CARBOPLATIN [Suspect]
     Active Substance: CARBOPLATIN
     Indication: Lung neoplasm
     Dosage: 476 MG / CYCLIC DOSE EVERY 21 DAYS , UNIT DOSE : 476 MG
     Dates: start: 20220919, end: 20220919
  3. PEMBROLIZUMAB [Suspect]
     Active Substance: PEMBROLIZUMAB
     Indication: Lung neoplasm
     Dosage: 200 MG / CYCLIC DOSE EVERY 21 DAYS , UNIT DOSE : 200 MG
     Dates: start: 20220919, end: 20220919
  4. LAMIVUDINE [Concomitant]
     Active Substance: LAMIVUDINE
     Indication: Product used for unknown indication
     Dosage: 100 MILLIGRAM DAILY; 1 CP 100 MG / DAY
  5. ALLOPURINOL [Concomitant]
     Active Substance: ALLOPURINOL
     Indication: Hyperuricaemia
     Dosage: 300 MILLIGRAM DAILY; 1 CP 300 MG / DAY
  6. ATORVASTATIN [Concomitant]
     Active Substance: ATORVASTATIN
     Indication: Disability
     Dosage: 20 MILLIGRAM DAILY; 1 CP 20 MG/DAY
  7. LOSARTAN HYDROCHLOROTHIAZIDE MYLAN GENERICS [Concomitant]
     Indication: Diabetes mellitus
     Dosage: 1 CP 100/25 MG PER DAY
  8. METFORMIN HYDROCHLORIDE [Concomitant]
     Active Substance: METFORMIN HYDROCHLORIDE
     Indication: Hypertension
     Dosage: 3000 MILLIGRAM DAILY; 1 CP 1000 MG X 3 TIMES A DAY
  9. CANRENOATE POTASSIUM [Concomitant]
     Active Substance: CANRENOATE POTASSIUM
     Indication: Pleural effusion
     Dosage: 200 MILLIGRAM DAILY;   1 CP 100 MG X 2 PER DAY , POTASSIO CANRENOATO
  10. PANTOPRAZOLE [Concomitant]
     Active Substance: PANTOPRAZOLE
     Indication: Gastrooesophageal reflux disease
     Dosage: 40 MILLIGRAM DAILY; 1 TABLET 40 MG / DAY
  11. BISOPROLOL [Concomitant]
     Active Substance: BISOPROLOL
     Indication: Hypertension
     Dosage: 2.5 MILLIGRAM DAILY; 1 TABLET 2.5 MG / DAY

REACTIONS (3)
  - Leukopenia [Recovered/Resolved]
  - Thrombocytopenia [Recovering/Resolving]
  - Anaemia [Recovering/Resolving]

NARRATIVE: CASE EVENT DATE: 20220926
